FAERS Safety Report 8018394-7 (Version None)
Quarter: 2011Q4

REPORT INFORMATION
  Report Type: 
  Country: None (occurrence: None)
  Receive Date: 20111227
  Receipt Date: 20111214
  Transmission Date: 20120403
  Serious: Yes (Other)
  Sender: FDA-Public Use
  Company Number: 1140971

PATIENT

DRUGS (1)
  1. ACETYLCYSTEINE [Suspect]
     Indication: PRODUCT USED FOR UNKNOWN INDICATION
     Dosage: 150 MG/KG/H, INTRAVENOUS DRIP
     Route: 041

REACTIONS (4)
  - CONVULSION [None]
  - OVERDOSE [None]
  - NAUSEA [None]
  - MEDICATION ERROR [None]
